FAERS Safety Report 18043043 (Version 2)
Quarter: 2020Q3

REPORT INFORMATION
  Report Type: Other
  Country: US (occurrence: US)
  Receive Date: 20200720
  Receipt Date: 20200814
  Transmission Date: 20201103
  Serious: Yes (Other)
  Sender: FDA-Public Use
  Company Number: US-ROCHE-2643224

PATIENT
  Age: 77 Year
  Sex: Female
  Weight: 54.03 kg

DRUGS (2)
  1. XOLAIR [Suspect]
     Active Substance: OMALIZUMAB
     Indication: IDIOPATHIC URTICARIA
     Dosage: ONGOING:NO
     Route: 058
     Dates: start: 202006, end: 20200713
  2. ALBUTEROL SULFATE. [Concomitant]
     Active Substance: ALBUTEROL SULFATE

REACTIONS (6)
  - Hypoaesthesia [Recovered/Resolved]
  - Thrombosis [Recovered/Resolved]
  - Wheezing [Recovered/Resolved]
  - Hypertension [Recovered/Resolved]
  - Asthma [Unknown]
  - Flushing [Recovered/Resolved]

NARRATIVE: CASE EVENT DATE: 20200713
